FAERS Safety Report 23660197 (Version 1)
Quarter: 2024Q1

REPORT INFORMATION
  Report Type: Spontaneous
  Country: FI (occurrence: FI)
  Receive Date: 20240321
  Receipt Date: 20240321
  Transmission Date: 20240410
  Serious: Yes (Other)
  Sender: FDA-Public Use
  Company Number: None

PATIENT
  Age: 31 Year
  Sex: Female

DRUGS (4)
  1. PANTOPRAZOLE [Suspect]
     Active Substance: PANTOPRAZOLE
     Indication: Prophylaxis against gastrointestinal ulcer
     Dosage: PANTOPRAZOLE RATIOPHARM?1 TABLET PER DAY
     Route: 048
     Dates: start: 20240111, end: 20240112
  2. IBUPROFEN [Concomitant]
     Active Substance: IBUPROFEN
     Indication: Pain
     Dosage: TIME INTERVAL: AS NECESSARY: 1X1-3 REQUIRED
     Route: 048
     Dates: start: 20240106
  3. ACETAMINOPHEN\CODEINE PHOSPHATE [Concomitant]
     Active Substance: ACETAMINOPHEN\CODEINE PHOSPHATE
     Indication: Pain
     Dosage: TIME INTERVAL: AS NECESSARY: 1-2X1-3 REQUIRED
     Route: 048
     Dates: start: 20240111
  4. Paramax [Concomitant]
     Indication: Pain
     Dosage: TIME INTERVAL: AS NECESSARY: 1-2X1-3 REQUIRED
     Route: 048
     Dates: start: 20240106

REACTIONS (5)
  - Altered state of consciousness [Recovered/Resolved]
  - Hyperhidrosis [Recovered/Resolved]
  - Visual impairment [Recovered/Resolved]
  - Tachycardia [Recovered/Resolved]
  - Dizziness [Recovered/Resolved]

NARRATIVE: CASE EVENT DATE: 20240111
